FAERS Safety Report 23728478 (Version 1)
Quarter: 2024Q2

REPORT INFORMATION
  Report Type: Other
  Country: US (occurrence: US)
  Receive Date: 20240410
  Receipt Date: 20240410
  Transmission Date: 20240716
  Serious: Yes (Other)
  Sender: FDA-Public Use
  Company Number: US-Appco Pharma LLC-2155430

PATIENT

DRUGS (4)
  1. BACLOFEN [Suspect]
     Active Substance: BACLOFEN
     Indication: Muscle spasticity
     Route: 065
  2. TIZANIDINE [Suspect]
     Active Substance: TIZANIDINE
     Route: 065
  3. DIAZEPAM [Suspect]
     Active Substance: DIAZEPAM
     Route: 065
  4. DANTROLENE. [Suspect]
     Active Substance: DANTROLENE SODIUM
     Route: 065

REACTIONS (1)
  - Treatment failure [Unknown]
